FAERS Safety Report 10255649 (Version 3)
Quarter: 2014Q3

REPORT INFORMATION
  Report Type: Spontaneous
  Country: US (occurrence: None)
  Receive Date: 20140620
  Receipt Date: 20140825
  Transmission Date: 20150326
  Serious: Yes (Hospitalization)
  Sender: FDA-Public Use
  Company Number: UNT-2014-002176

PATIENT
  Age: 14 Month
  Sex: Male
  Weight: 8 kg

DRUGS (2)
  1. SILDENAFIL (SILDENAFIL) [Concomitant]
     Active Substance: SILDENAFIL
     Indication: COR PULMONALE CHRONIC
  2. REMODULIN [Suspect]
     Active Substance: TREPROSTINIL
     Indication: COR PULMONALE CHRONIC
     Route: 041
     Dates: start: 20130801

REACTIONS (3)
  - Pneumonia [None]
  - Acute respiratory distress syndrome [None]
  - Viral infection [None]

NARRATIVE: CASE EVENT DATE: 20140429
